FAERS Safety Report 23834948 (Version 1)
Quarter: 2024Q2

REPORT INFORMATION
  Report Type: Spontaneous
  Country: US (occurrence: US)
  Receive Date: 20240509
  Receipt Date: 20240509
  Transmission Date: 20240716
  Serious: Yes (Death)
  Sender: FDA-Public Use
  Company Number: US-DRL-USA-LIT/USA/24/0006743

PATIENT
  Age: 57 Year
  Sex: Female

DRUGS (5)
  1. CIPROFLOXACIN [Suspect]
     Active Substance: CIPROFLOXACIN
     Indication: Endocarditis
     Dosage: FOR 6 WEEKS
  2. VANCOMYCIN [Suspect]
     Active Substance: VANCOMYCIN
     Indication: Endocarditis
     Dosage: FOR 6 WEEKS
  3. CEFTAZIDIME [Suspect]
     Active Substance: CEFTAZIDIME
     Indication: Endocarditis
     Dosage: FOR 6 WEEKS
  4. MEROPENEM [Suspect]
     Active Substance: MEROPENEM
     Indication: Endocarditis
  5. MICAFUNGIN [Suspect]
     Active Substance: MICAFUNGIN SODIUM
     Indication: Endocarditis

REACTIONS (4)
  - Drug ineffective [Fatal]
  - Condition aggravated [Fatal]
  - Septic shock [Fatal]
  - Product use in unapproved indication [Unknown]
